FAERS Safety Report 6840507-0 (Version None)
Quarter: 2010Q3

REPORT INFORMATION
  Report Type: 
  Country: None (occurrence: None)
  Receive Date: 20100714
  Receipt Date: 20100707
  Transmission Date: 20110219
  Serious: Yes (Other)
  Sender: FDA-Public Use
  Company Number: A0868975A

PATIENT
  Age: 87 Year
  Sex: Female

DRUGS (14)
  1. TYKERB [Suspect]
     Indication: BREAST CANCER
     Dosage: 5TAB PER DAY
     Route: 048
     Dates: start: 20100627
  2. ALPRAZOLAM [Concomitant]
  3. ASPIRIN [Concomitant]
  4. CALTRATE [Concomitant]
  5. COUMADIN [Concomitant]
  6. COREG [Concomitant]
  7. DIGOXIN [Concomitant]
  8. FENTANYL-75 [Concomitant]
  9. FUROSEMIDE [Concomitant]
  10. MULTI-VITAMIN [Concomitant]
  11. STOOL SOFTENER [Concomitant]
  12. XELODA [Concomitant]
  13. HYDROCODONE [Concomitant]
  14. TYLENOL [Concomitant]

REACTIONS (2)
  - DEPRESSED LEVEL OF CONSCIOUSNESS [None]
  - FATIGUE [None]
